FAERS Safety Report 4427650-0 (Version None)
Quarter: 2004Q4

REPORT INFORMATION
  Report Type: 
  Country: None (occurrence: None)
  Receive Date: 20040812
  Receipt Date: 20040803
  Transmission Date: 20050328
  Serious: Yes (Other)
  Sender: FDA-Public Use
  Company Number: SUS1-2004-00440

PATIENT
  Age: 27 Year
  Sex: Female
  Weight: 53.5 kg

DRUGS (5)
  1. ADDERALL 10 [Suspect]
     Indication: ATTENTION DEFICIT/HYPERACTIVITY DISORDER
     Dosage: 10 MG, 3X/DAY:TID, ORAL
     Route: 048
     Dates: start: 20040401
  2. KLONOPIN [Concomitant]
  3. TYLENOL [Concomitant]
  4. CENTRUM (VITAMINS NOS, MINERALS NOS) [Concomitant]
  5. DEPO-PROVERA [Concomitant]

REACTIONS (2)
  - DIZZINESS [None]
  - HYPOGLYCAEMIA [None]
